FAERS Safety Report 11140754 (Version 1)
Quarter: 2015Q2

REPORT INFORMATION
  Report Type: Spontaneous
  Country: US (occurrence: US)
  Receive Date: 20150527
  Receipt Date: 20150527
  Transmission Date: 20150821
  Serious: No
  Sender: FDA-Public Use
  Company Number: US-MALLINCKRODT-QSC-2014-0742

PATIENT
  Age: 45 Year

DRUGS (1)
  1. H.P. ACTHAR [Suspect]
     Active Substance: CORTICOTROPIN
     Indication: FOCAL SEGMENTAL GLOMERULOSCLEROSIS
     Dosage: UNK
     Dates: start: 20131112

REACTIONS (3)
  - Herpes zoster [Recovered/Resolved with Sequelae]
  - Deep vein thrombosis [Unknown]
  - Cellulitis [Unknown]
